FAERS Safety Report 9883971 (Version 1)
Quarter: 2014Q1

REPORT INFORMATION
  Report Type: Spontaneous
  Country: US (occurrence: US)
  Receive Date: 20140210
  Receipt Date: 20140210
  Transmission Date: 20141002
  Serious: No
  Sender: FDA-Public Use
  Company Number: US-ALLERGAN-1317423US

PATIENT
  Age: 33 Year
  Sex: Female

DRUGS (7)
  1. BOTOX COSMETIC [Suspect]
     Indication: SKIN WRINKLING
     Dosage: 1 UNITS, SINGLE
     Dates: start: 20131018, end: 20131018
  2. BOTOX COSMETIC [Suspect]
     Indication: SKIN WRINKLING
     Dosage: 5 UNITS, SINGLE
     Dates: start: 20131018, end: 20131018
  3. BOTOX COSMETIC [Suspect]
     Indication: SKIN WRINKLING
     Dosage: 1 UNITS, SINGLE
     Dates: start: 20131011, end: 20131011
  4. BOTOX COSMETIC [Suspect]
     Dosage: 5 UNITS, SINGLE
     Dates: start: 20131011, end: 20131011
  5. BOTOX COSMETIC [Suspect]
     Dosage: 1 UNITS, SINGLE
     Dates: start: 20130906, end: 20130906
  6. MIRENA [Concomitant]
     Indication: INTRA-UTERINE CONTRACEPTIVE DEVICE
     Dosage: UNK
     Route: 015
     Dates: start: 2011
  7. JUVEDERM ULTRA PLUS [Concomitant]
     Indication: SKIN WRINKLING
     Dosage: UNK UNK, SINGLE
     Dates: start: 20130906, end: 20130906

REACTIONS (10)
  - Photosensitivity reaction [Recovering/Resolving]
  - Migraine [Recovering/Resolving]
  - Fatigue [Unknown]
  - Skin tightness [Recovered/Resolved]
  - Skin tightness [Unknown]
  - Skin tightness [Recovered/Resolved]
  - Musculoskeletal disorder [Unknown]
  - Skin discolouration [Unknown]
  - Off label use [Unknown]
  - Nausea [Unknown]
